FAERS Safety Report 7075368-0 (Version None)
Quarter: 2010Q4

REPORT INFORMATION
  Report Type: 
  Country: None (occurrence: None)
  Receive Date: 20101030
  Receipt Date: 20100902
  Transmission Date: 20110411
  Serious: No
  Sender: FDA-Public Use
  Company Number: US-WYE-H17295810

PATIENT
  Sex: Female

DRUGS (2)
  1. PRISTIQ [Suspect]
     Route: 048
     Dates: end: 20100101
  2. PRISTIQ [Suspect]
     Route: 048
     Dates: start: 20100101

REACTIONS (1)
  - DIZZINESS [None]
